FAERS Safety Report 9962247 (Version 1)
Quarter: 2014Q1

REPORT INFORMATION
  Report Type: Report from Study
  Country: US (occurrence: US)
  Receive Date: 20140305
  Receipt Date: 20140305
  Transmission Date: 20141002
  Serious: No
  Sender: FDA-Public Use
  Company Number: US-ABBVIE-13P-163-1116175-00

PATIENT
  Age: 66 Year
  Sex: Female

DRUGS (8)
  1. HUMIRA [Suspect]
     Indication: PSORIATIC ARTHROPATHY
  2. NOVOLOG [Concomitant]
     Indication: DIABETES MELLITUS
  3. LISINOPRIL [Concomitant]
     Indication: CARDIOVASCULAR EVENT PROPHYLAXIS
     Dosage: 10 ONCE DAILY
  4. PRAVASTATIN [Concomitant]
     Indication: PROPHYLAXIS
  5. REQUIP [Concomitant]
     Indication: RESTLESS LEGS SYNDROME
  6. CELEXA [Concomitant]
     Indication: PRODUCT USED FOR UNKNOWN INDICATION
  7. GABAPENTIN [Concomitant]
     Indication: RESTLESS LEGS SYNDROME
  8. METFORMIN [Concomitant]
     Indication: DIABETES MELLITUS

REACTIONS (7)
  - Restless legs syndrome [Recovering/Resolving]
  - Diabetes mellitus [Recovering/Resolving]
  - Wrong technique in drug usage process [Recovering/Resolving]
  - Injury associated with device [Recovering/Resolving]
  - Incorrect route of drug administration [Recovering/Resolving]
  - Incorrect dose administered [Recovering/Resolving]
  - Injection site haemorrhage [Recovering/Resolving]
